FAERS Safety Report 4499342-3 (Version None)
Quarter: 2004Q4

REPORT INFORMATION
  Report Type: 
  Country: None (occurrence: None)
  Receive Date: 20041111
  Receipt Date: 20041020
  Transmission Date: 20050328
  Serious: Yes (Death, Hospitalization)
  Sender: FDA-Public Use
  Company Number: FR-MERCK-0410FRA00082

PATIENT
  Age: 47 Year
  Sex: Male
  Weight: 65 kg

DRUGS (4)
  1. CRIXIVAN [Suspect]
     Indication: HIV INFECTION
     Route: 048
     Dates: start: 19980630, end: 20040920
  2. RITONAVIR [Suspect]
     Indication: HIV INFECTION
     Route: 048
     Dates: start: 19980630, end: 20040920
  3. LAMIVUDINE AND ZIDOVUDINE [Suspect]
     Indication: HIV INFECTION
     Route: 048
     Dates: start: 19980630, end: 20040920
  4. GEFITINIB [Suspect]
     Route: 048
     Dates: start: 20040716, end: 20040920

REACTIONS (2)
  - PNEUMOCYSTIS CARINII PNEUMONIA [None]
  - RESPIRATORY DISORDER [None]
